FAERS Safety Report 14211306 (Version 1)
Quarter: 2017Q4

REPORT INFORMATION
  Report Type: Spontaneous
  Country: FI (occurrence: FI)
  Receive Date: 20171121
  Receipt Date: 20171121
  Transmission Date: 20180321
  Serious: Yes (Other)
  Sender: FDA-Public Use
  Company Number: FI-BAYER-2017-208994

PATIENT
  Age: 21 Year
  Sex: Female

DRUGS (1)
  1. JAYDESS [Suspect]
     Active Substance: LEVONORGESTREL
     Dosage: 14 MCG/24HR, CONT
     Route: 015
     Dates: start: 20170112, end: 20171029

REACTIONS (5)
  - Drug ineffective [None]
  - Gestational diabetes [None]
  - Pregnancy with contraceptive device [None]
  - Device expulsion [None]
  - Gestational hypertension [None]

NARRATIVE: CASE EVENT DATE: 20170620
